FAERS Safety Report 7968697-7 (Version None)
Quarter: 2011Q4

REPORT INFORMATION
  Report Type: 
  Country: None (occurrence: None)
  Receive Date: 20111209
  Receipt Date: 20111205
  Transmission Date: 20120403
  Serious: No
  Sender: FDA-Public Use
  Company Number: US-PFIZER INC-2011297181

PATIENT
  Sex: Female
  Weight: 61.678 kg

DRUGS (2)
  1. POTASSIUM PENICILLIN G [Suspect]
     Dosage: UNK
  2. COMPAZINE [Suspect]
     Dosage: UNK

REACTIONS (1)
  - DRUG HYPERSENSITIVITY [None]
